FAERS Safety Report 5697822-6 (Version None)
Quarter: 2008Q2

REPORT INFORMATION
  Report Type: 
  Country: None (occurrence: None)
  Receive Date: 20080404
  Receipt Date: 20080404
  Transmission Date: 20081010
  Serious: Yes (Life-Threatening, Hospitalization, Disabling)
  Sender: FDA-Public Use
  Company Number: None

PATIENT
  Sex: Male
  Weight: 110.2241 kg

DRUGS (10)
  1. METFORMIN HCL [Suspect]
     Indication: DIABETES MELLITUS
     Dosage: 500MG FOUR TIMES DAILY PO  PRIOR TO ADMISSION
     Route: 048
  2. FOLIC ACID [Concomitant]
  3. SINGULAIR [Suspect]
  4. METHOTREXATE [Concomitant]
  5. DIOVAN [Concomitant]
  6. LEVAQUIN [Concomitant]
  7. FOSAMAX [Concomitant]
  8. SIMVASTATIN [Concomitant]
  9. ALBUTEROL [Concomitant]
  10. GLIMEPIRIDE [Concomitant]

REACTIONS (1)
  - LACTIC ACIDOSIS [None]
